FAERS Safety Report 6860746-2 (Version None)
Quarter: 2010Q3

REPORT INFORMATION
  Report Type: 
  Country: None (occurrence: None)
  Receive Date: 20100720
  Receipt Date: 20100713
  Transmission Date: 20110219
  Serious: Yes (Congenital Anomaly)
  Sender: FDA-Public Use
  Company Number: GXKR2010GB07751

PATIENT
  Age: 2 Week
  Sex: Female

DRUGS (1)
  1. METRONIDAZOLE [Suspect]
     Dosage: MATERNAL DOSE: 200 MG, TID
     Route: 064

REACTIONS (3)
  - CONGENITAL CARDIOVASCULAR ANOMALY [None]
  - DRUG EXPOSURE DURING PREGNANCY [None]
  - DYSMORPHISM [None]
